FAERS Safety Report 11836135 (Version 1)
Quarter: 2015Q4

REPORT INFORMATION
  Report Type: Spontaneous
  Country: GB (occurrence: GB)
  Receive Date: 20151215
  Receipt Date: 20151215
  Transmission Date: 20160305
  Serious: Yes (Hospitalization)
  Sender: FDA-Public Use
  Company Number: GB-TEVA-618129ISR

PATIENT
  Age: 27 Year
  Sex: Female

DRUGS (14)
  1. MELATONIN [Concomitant]
     Active Substance: MELATONIN
     Dosage: 4 MG TABLET AT NIGHT
     Route: 065
  2. SENNA [Concomitant]
     Active Substance: SENNA LEAF\SENNOSIDES\SENNOSIDES A AND B
     Dosage: 15 MILLIGRAM DAILY; 15 MG AT NIGHT
     Route: 065
  3. DESMOPRESSIN [Concomitant]
     Active Substance: DESMOPRESSIN
     Dosage: 600 MICROGRAM DAILY;
     Route: 065
  4. GABAPENTIN. [Concomitant]
     Active Substance: GABAPENTIN
     Dosage: 900 MILLIGRAM DAILY;
     Route: 065
  5. LAMOTRIGINE. [Suspect]
     Active Substance: LAMOTRIGINE
     Dosage: 300 MILLIGRAM DAILY;
     Route: 065
  6. HYDROCORTISONE. [Concomitant]
     Active Substance: HYDROCORTISONE
     Dosage: 10 MG AT MORNING AND LUNCHTIME
     Route: 065
  7. PARACETAMOL, CODEINE [Concomitant]
     Dosage: CODEINE/PARACETAMOL: 8/500 TWO TABLETS FOUR TIMES A DAY
     Route: 065
  8. CLONAZEPAM. [Interacting]
     Active Substance: CLONAZEPAM
     Dosage: 500MCG AT NIGHT
     Route: 065
  9. LACTULOSE. [Concomitant]
     Active Substance: LACTULOSE
     Dosage: 30 ML DAILY;
     Route: 065
  10. LEVOTHYROXINE SODIUM. [Concomitant]
     Active Substance: LEVOTHYROXINE SODIUM
     Dosage: 50 MCG INCREASED TO 75 MCG
     Route: 065
  11. LEVOTHYROXINE SODIUM. [Concomitant]
     Active Substance: LEVOTHYROXINE SODIUM
     Dosage: 75 MICROGRAM DAILY; 75 MCG IN THE MORNING
     Route: 065
  12. BACLOFEN. [Concomitant]
     Active Substance: BACLOFEN
     Dosage: 30 MILLIGRAM DAILY;
     Route: 065
  13. PREMPAK [Interacting]
     Active Substance: ESTROGENS, CONJUGATED\NORGESTREL
     Dosage: 1 DOSAGE FORMS DAILY; 1 TABLET IN THE MORNING
     Route: 065
  14. HYDROCORTISONE. [Concomitant]
     Active Substance: HYDROCORTISONE
     Dosage: 5 MILLIGRAM DAILY; 5 MG AT TEATIME
     Route: 065

REACTIONS (3)
  - Hyponatraemia [Unknown]
  - Seizure [Unknown]
  - Drug interaction [Unknown]
